FAERS Safety Report 11104323 (Version 1)
Quarter: 2015Q2

REPORT INFORMATION
  Report Type: Spontaneous
  Country: US (occurrence: US)
  Receive Date: 20150511
  Receipt Date: 20150511
  Transmission Date: 20150821
  Serious: No
  Sender: FDA-Public Use
  Company Number: US-PFIZER INC-2015147993

PATIENT
  Age: 57 Year
  Sex: Female

DRUGS (1)
  1. NIFEDIPINE. [Suspect]
     Active Substance: NIFEDIPINE
     Dosage: 30 MG, 1X/DAY
     Dates: start: 20080307

REACTIONS (4)
  - Raynaud^s phenomenon [Unknown]
  - Oral disorder [Unknown]
  - Drug hypersensitivity [Unknown]
  - Glossitis [Unknown]
